FAERS Safety Report 16504514 (Version 2)
Quarter: 2019Q3

REPORT INFORMATION
  Report Type: Spontaneous
  Country: CA (occurrence: CA)
  Receive Date: 20190701
  Receipt Date: 20190702
  Transmission Date: 20191004
  Serious: Yes (Death, Other)
  Sender: FDA-Public Use
  Company Number: CA-ELI_LILLY_AND_COMPANY-CA201906013189

PATIENT
  Age: 21 Year
  Sex: Male

DRUGS (6)
  1. HALOPERIDOL. [Concomitant]
     Active Substance: HALOPERIDOL
     Indication: PRODUCT USED FOR UNKNOWN INDICATION
  2. ATIVAN [Concomitant]
     Active Substance: LORAZEPAM
     Indication: PRODUCT USED FOR UNKNOWN INDICATION
  3. CYMBALTA [Suspect]
     Active Substance: DULOXETINE HYDROCHLORIDE
     Indication: DEPRESSION
     Dosage: UNK, UNKNOWN
     Route: 065
  4. ZYPREXA [Suspect]
     Active Substance: OLANZAPINE
     Indication: PRODUCT USED FOR UNKNOWN INDICATION
     Dosage: UNK, UNKNOWN
     Route: 065
  5. CELECOXIB. [Concomitant]
     Active Substance: CELECOXIB
     Indication: MOOD SWINGS
  6. CELECOXIB. [Concomitant]
     Active Substance: CELECOXIB
     Indication: DEPRESSION

REACTIONS (7)
  - Physical assault [Unknown]
  - Completed suicide [Fatal]
  - Face injury [Unknown]
  - Drug dependence [Unknown]
  - Homicide [Unknown]
  - Suicidal ideation [Unknown]
  - Gun shot wound [Fatal]

NARRATIVE: CASE EVENT DATE: 2010
